FAERS Safety Report 20728383 (Version 1)
Quarter: 2022Q2

REPORT INFORMATION
  Report Type: Spontaneous
  Country: US (occurrence: US)
  Receive Date: 20220420
  Receipt Date: 20220420
  Transmission Date: 20220720
  Serious: Yes (Hospitalization, Other)
  Sender: FDA-Public Use
  Company Number: US-SANOFI-01063986

PATIENT
  Age: 64 Year
  Sex: Female

DRUGS (1)
  1. LANTUS SOLOSTAR [Suspect]
     Active Substance: INSULIN GLARGINE
     Indication: Type 2 diabetes mellitus
     Dosage: 48 UNITS AM/ 28 UNITS AT NIGHT

REACTIONS (7)
  - Diabetic ketoacidosis [Unknown]
  - Chest pain [Unknown]
  - Tachycardia [Unknown]
  - Fall [Unknown]
  - Limb injury [Unknown]
  - Face injury [Unknown]
  - Inappropriate schedule of product administration [Unknown]

NARRATIVE: CASE EVENT DATE: 20220412
